FAERS Safety Report 4438475-4 (Version None)
Quarter: 2004Q3

REPORT INFORMATION
  Report Type: 
  Country: None (occurrence: None)
  Receive Date: 20040728
  Receipt Date: 20040323
  Transmission Date: 20050211
  Serious: No
  Sender: FDA-Public Use
  Company Number: USA040362905

PATIENT
  Age: 57 Year
  Sex: Female
  Weight: 72 kg

DRUGS (3)
  1. STRATTERA [Suspect]
     Dosage: 75 MG DAY
     Dates: start: 20040301
  2. CENESTIN (ESTROGENS CONJUGATED) [Concomitant]
  3. THYROID TAB [Concomitant]

REACTIONS (10)
  - AGGRESSION [None]
  - CONSTIPATION [None]
  - DEPRESSION [None]
  - FATIGUE [None]
  - FEELING ABNORMAL [None]
  - HOT FLUSH [None]
  - IMPATIENCE [None]
  - LIBIDO DECREASED [None]
  - MEMORY IMPAIRMENT [None]
  - WEIGHT DECREASED [None]
